FAERS Safety Report 18736032 (Version 3)
Quarter: 2021Q2

REPORT INFORMATION
  Report Type: Spontaneous
  Country: US (occurrence: US)
  Receive Date: 20210113
  Receipt Date: 20210520
  Transmission Date: 20210717
  Serious: Yes (Other)
  Sender: FDA-Public Use
  Company Number: US-PFIZER INC-2021018687

PATIENT
  Age: 61 Year
  Sex: Female

DRUGS (2)
  1. BRAFTOVI [Suspect]
     Active Substance: ENCORAFENIB
     Indication: COLON CANCER
     Dosage: 300 MG, 1X/DAY
     Dates: start: 20210108, end: 2021
  2. MEKTOVI [Suspect]
     Active Substance: BINIMETINIB
     Indication: COLON CANCER
     Dosage: 30 MG, ONCE EVERY 12 HOURS
     Dates: start: 20210108

REACTIONS (10)
  - Blister [Unknown]
  - Fatigue [Unknown]
  - Dyspnoea [Unknown]
  - Overdose [Unknown]
  - Product use issue [Unknown]
  - Off label use [Unknown]
  - Nausea [Unknown]
  - Pain [Unknown]
  - Blister infected [Unknown]
  - Mutism [Unknown]

NARRATIVE: CASE EVENT DATE: 2021
